FAERS Safety Report 22061080 (Version 5)
Quarter: 2023Q2

REPORT INFORMATION
  Report Type: Report from Study
  Country: US (occurrence: US)
  Receive Date: 20230303
  Receipt Date: 20230403
  Transmission Date: 20230722
  Serious: Yes (Death, Life-Threatening, Hospitalization)
  Sender: FDA-Public Use
  Company Number: US-PFIZER INC-PV202300039426

PATIENT
  Age: 67 Year
  Sex: Female

DRUGS (6)
  1. TALAZOPARIB [Suspect]
     Active Substance: TALAZOPARIB
     Indication: Breast cancer metastatic
     Dosage: ON DAYS 15-21 OF A 21 DAY CYCLE
     Route: 048
     Dates: start: 20210811, end: 20230208
  2. SACITUZUMAB GOVITECAN [Suspect]
     Active Substance: SACITUZUMAB GOVITECAN
     Indication: Breast cancer metastatic
     Dosage: ON DAYS 1 AND 8 OF A 21 DAY CYCLE
     Route: 042
     Dates: start: 20210728, end: 20230222
  3. NEUPOGEN [Concomitant]
     Active Substance: FILGRASTIM
     Indication: Chemotherapy
     Dosage: 300 UG, CYCLIC (TAKEN ON DAYS 2,3,4,5,6 OF 21-DAY CHEMOTHERAPY CYCLE )
     Route: 058
     Dates: start: 20230125
  4. NEUPOGEN [Concomitant]
     Active Substance: FILGRASTIM
     Indication: Neutropenia
  5. LOMOTIL [Concomitant]
     Active Substance: ATROPINE SULFATE\DIPHENOXYLATE HYDROCHLORIDE
     Indication: Diarrhoea
     Dosage: [DIPHENOXYLATE 2.5 MG]/[ ATROPINE 0.025 MG], AS NEEDED
     Route: 048
  6. ATIVAN [Concomitant]
     Active Substance: LORAZEPAM
     Indication: Anxiety
     Dosage: UNK UNK, AS NEEDED
     Route: 048

REACTIONS (3)
  - Multiple organ dysfunction syndrome [Fatal]
  - Hypoxia [Fatal]
  - Hyperglycaemia [Fatal]

NARRATIVE: CASE EVENT DATE: 20230227
